FAERS Safety Report 13533152 (Version 2)
Quarter: 2017Q2

REPORT INFORMATION
  Report Type: Spontaneous
  Country: DE (occurrence: DE)
  Receive Date: 20170510
  Receipt Date: 20170531
  Transmission Date: 20170830
  Serious: Yes (Hospitalization)
  Sender: FDA-Public Use
  Company Number: DE-JNJFOC-20170503682

PATIENT
  Age: 47 Year
  Sex: Female
  Weight: 66.4 kg

DRUGS (1)
  1. RISPERIDONE. [Suspect]
     Active Substance: RISPERIDONE
     Indication: PSYCHOTIC DISORDER
     Route: 048
     Dates: start: 20100701, end: 20150707

REACTIONS (9)
  - Personality disorder [Unknown]
  - Thinking abnormal [Unknown]
  - Neuroleptic malignant syndrome [Recovered/Resolved]
  - Acute kidney injury [Recovered/Resolved]
  - Urinary tract infection [Unknown]
  - Psychotic disorder [Unknown]
  - Hyperparathyroidism secondary [Unknown]
  - Diarrhoea [Unknown]
  - Bacteraemia [Unknown]

NARRATIVE: CASE EVENT DATE: 2010
